FAERS Safety Report 10068143 (Version 1)
Quarter: 2014Q2

REPORT INFORMATION
  Report Type: Spontaneous
  Country: US (occurrence: US)
  Receive Date: 20140409
  Receipt Date: 20140409
  Transmission Date: 20141212
  Serious: No
  Sender: FDA-Public Use
  Company Number: US-PFIZER INC-2014093378

PATIENT
  Age: 21 Year
  Sex: Female
  Weight: 35.83 kg

DRUGS (1)
  1. ELELYSO [Suspect]
     Indication: GAUCHER^S DISEASE
     Dosage: 2200 UNITS EVERY OTHER WEEK
     Route: 042
     Dates: start: 20140318

REACTIONS (2)
  - Infusion site hypersensitivity [Recovered/Resolved]
  - Urticaria [Recovered/Resolved]
